FAERS Safety Report 21345892 (Version 1)
Quarter: 2022Q3

REPORT INFORMATION
  Report Type: Spontaneous
  Country: US (occurrence: US)
  Receive Date: 20220916
  Receipt Date: 20220916
  Transmission Date: 20221027
  Serious: No
  Sender: FDA-Public Use
  Company Number: US-009507513-2208USA007878

PATIENT
  Age: 60 Year
  Sex: Female

DRUGS (1)
  1. NOXAFIL [Suspect]
     Active Substance: POSACONAZOLE
     Indication: Cutaneous mucormycosis
     Dosage: 100 MILLIGRAM, 3 TIMES DAILY
     Route: 048

REACTIONS (1)
  - Product use in unapproved indication [Unknown]
